FAERS Safety Report 13673783 (Version 4)
Quarter: 2017Q3

REPORT INFORMATION
  Report Type: Spontaneous
  Country: US (occurrence: US)
  Receive Date: 20170621
  Receipt Date: 20170901
  Transmission Date: 20171127
  Serious: Yes (Other)
  Sender: FDA-Public Use
  Company Number: US-BAYER-2017-119849

PATIENT
  Age: 47 Year
  Sex: Female

DRUGS (5)
  1. LINZESS [Concomitant]
     Active Substance: LINACLOTIDE
     Dosage: 145 MG, QD
     Dates: start: 20170213
  2. AZILSARTAN MEDOXOMIL [Concomitant]
     Active Substance: AZILSARTAN KAMEDOXOMIL
     Dosage: UNK UNK, QD
     Dates: start: 20170213
  3. BETADINE [Concomitant]
     Active Substance: POVIDONE-IODINE
  4. MIRENA [Suspect]
     Active Substance: LEVONORGESTREL
     Indication: CONTRACEPTION
     Dosage: 20 MCG/24HR, CONT
     Route: 015
     Dates: start: 201111, end: 20170501
  5. MIRENA [Suspect]
     Active Substance: LEVONORGESTREL
     Indication: CONTRACEPTION
     Dosage: 20 MCG/24HR, CONT
     Route: 015
     Dates: start: 20170501

REACTIONS (6)
  - Ovarian cyst [None]
  - Device use issue [None]
  - Anxiety [None]
  - Menstrual disorder [None]
  - Device dislocation [Not Recovered/Not Resolved]
  - Pain in extremity [None]

NARRATIVE: CASE EVENT DATE: 2017
